FAERS Safety Report 9404647 (Version 1)
Quarter: 2013Q3

REPORT INFORMATION
  Report Type: Spontaneous
  Country: NZ (occurrence: NZ)
  Receive Date: 20130717
  Receipt Date: 20130717
  Transmission Date: 20140515
  Serious: Yes (Other)
  Sender: FDA-Public Use
  Company Number: PHHY2013NZ074572

PATIENT
  Sex: 0

DRUGS (1)
  1. CLOZAPINE [Suspect]
     Dosage: 100 MG

REACTIONS (7)
  - Left ventricular failure [Unknown]
  - Dyspnoea [Unknown]
  - Pyrexia [Unknown]
  - Pleural effusion [Unknown]
  - Cough [Unknown]
  - Inflammation [Unknown]
  - Antipsychotic drug level increased [Unknown]
